FAERS Safety Report 25826229 (Version 3)
Quarter: 2025Q4

REPORT INFORMATION
  Report Type: Report from Study
  Country: EU (occurrence: EU)
  Receive Date: 20250919
  Receipt Date: 20251113
  Transmission Date: 20260118
  Serious: Yes (Life-Threatening)
  Sender: ABBVIE
  Company Number: EU-ABBVIE-6402552

PATIENT
  Age: 68 Year
  Sex: Female

DRUGS (7)
  1. CARBIDOPA\LEVODOPA [Suspect]
     Active Substance: CARBIDOPA\LEVODOPA
     Indication: Parkinson^s disease
     Route: 050
  2. CARBIDOPA\LEVODOPA [Suspect]
     Active Substance: CARBIDOPA\LEVODOPA
     Dosage: 20 MG + 5 MG (VIA NJ)  MORN:15CC;MAIN:4.3CC/H;EXTRA:1CC
     Route: 050
     Dates: start: 20231010
  3. CARBIDOPA\LEVODOPA [Suspect]
     Active Substance: CARBIDOPA\LEVODOPA
     Dosage: 20 MG + 5 MG, MORN:9CC;MAIN:5.8CC/H;EXTRA:4CC
     Route: 050
     Dates: start: 2025
  4. Folifer [Concomitant]
     Indication: Product used for unknown indication
     Dosage: 1 TABLET? START DATE TEXT: BEFORE DUODOPA
     Route: 048
  5. RIVOTRIL [Concomitant]
     Active Substance: CLONAZEPAM
     Indication: Product used for unknown indication
     Dosage: 1 TABLET AT BEDTIME?FORM STRENGTH: 0.5 MG
     Route: 048
  6. CLOZAPINE [Concomitant]
     Active Substance: CLOZAPINE
     Indication: Product used for unknown indication
     Dosage: FORM STRENGTH: 12.5MG, START DATE TEXT: BEFORE DUODOPA
     Route: 048
  7. SINEMET CR [Concomitant]
     Active Substance: CARBIDOPA\LEVODOPA
     Indication: Product used for unknown indication
     Dosage: 2 TABLET, START DATE TEXT: BEFORE DUODOPA , FREQUENCY: AT BEDTIME
     Route: 048

REACTIONS (7)
  - Anaemia [Recovered/Resolved]
  - Constipation [Not Recovered/Not Resolved]
  - Haemorrhoidal haemorrhage [Recovering/Resolving]
  - Fall [Recovering/Resolving]
  - Weight decreased [Recovering/Resolving]
  - Syncope [Recovered/Resolved]
  - Fatigue [Not Recovered/Not Resolved]

NARRATIVE: CASE EVENT DATE: 20250101
